FAERS Safety Report 4773854-7 (Version None)
Quarter: 2005Q3

REPORT INFORMATION
  Report Type: 
  Country: None (occurrence: None)
  Receive Date: 20050919
  Receipt Date: 20050831
  Transmission Date: 20060218
  Serious: Yes (Other)
  Sender: FDA-Public Use
  Company Number: PHBS2005IN12803

PATIENT
  Age: 55 Year
  Sex: Male

DRUGS (2)
  1. VISUDYNE [Suspect]
     Indication: RETINAL NEOVASCULARISATION
     Dosage: NI
  2. VISUDYNE [Suspect]
     Indication: RETINAL TELANGIECTASIA
     Dosage: NI

REACTIONS (3)
  - POST PROCEDURAL COMPLICATION [None]
  - RETINAL INJURY [None]
  - VISUAL ACUITY REDUCED [None]
